FAERS Safety Report 21916890 (Version 4)
Quarter: 2023Q4

REPORT INFORMATION
  Report Type: Report from Study
  Country: DE (occurrence: DE)
  Receive Date: 20230126
  Receipt Date: 20231023
  Transmission Date: 20240109
  Serious: Yes (Hospitalization)
  Sender: FDA-Public Use
  Company Number: DE-SAMSUNG BIOEPIS-SB-2023-01162

PATIENT
  Age: 80 Year
  Sex: Female

DRUGS (3)
  1. METHOTREXATE SODIUM [Suspect]
     Active Substance: METHOTREXATE SODIUM
     Dosage: 10 MG, WEEKLY
     Dates: end: 202205
  2. METHOTREXATE SODIUM [Suspect]
     Active Substance: METHOTREXATE SODIUM
     Dosage: 15 MG
  3. ETANERCEPT [Suspect]
     Active Substance: ETANERCEPT
     Indication: Rheumatoid arthritis
     Dosage: 50 MG, WEEKLY
     Dates: start: 202201

REACTIONS (4)
  - COVID-19 [Recovered/Resolved]
  - Diarrhoea [Unknown]
  - Productive cough [Unknown]
  - Dry mouth [Unknown]

NARRATIVE: CASE EVENT DATE: 20220601
